FAERS Safety Report 11365890 (Version 2)
Quarter: 2015Q4

REPORT INFORMATION
  Report Type: Spontaneous
  Country: US (occurrence: US)
  Receive Date: 20150811
  Receipt Date: 20151202
  Transmission Date: 20160304
  Serious: Yes (Hospitalization, Other)
  Sender: FDA-Public Use
  Company Number: US-DSJP-DSU-2015-124869

PATIENT
  Sex: Male
  Weight: 78.5 kg

DRUGS (3)
  1. AZOR [Suspect]
     Active Substance: AMLODIPINE BESYLATE\OLMESARTAN MEDOXOMIL
     Indication: HYPERTENSION
     Dosage: 10-40MG ONCE DAILY
     Dates: start: 200810, end: 201207
  2. BENICAR [Suspect]
     Active Substance: OLMESARTAN MEDOXOMIL
     Indication: HYPERTENSION
     Dosage: 20 MG, QD
     Dates: start: 2008, end: 201210
  3. BENICAR HCT [Suspect]
     Active Substance: HYDROCHLOROTHIAZIDE\OLMESARTAN MEDOXOMIL
     Indication: HYPERTENSION
     Dosage: 20-12.5 ONCE DAILY
     Dates: start: 20150702

REACTIONS (8)
  - Acute kidney injury [Unknown]
  - Clostridium difficile colitis [Unknown]
  - Malabsorption [Recovering/Resolving]
  - Hypernatraemia [Unknown]
  - Renal failure [Unknown]
  - Gastrooesophageal reflux disease [Unknown]
  - Inflammatory bowel disease [Recovering/Resolving]
  - Coeliac disease [Recovering/Resolving]

NARRATIVE: CASE EVENT DATE: 2012
